FAERS Safety Report 5069015-7 (Version None)
Quarter: 2006Q3

REPORT INFORMATION
  Report Type: 
  Country: None (occurrence: None)
  Receive Date: 20060728
  Receipt Date: 20060711
  Transmission Date: 20061208
  Serious: Yes (Hospitalization)
  Sender: FDA-Public Use
  Company Number: BE200606001718

PATIENT
  Age: 42 Year
  Sex: Male

DRUGS (4)
  1. ALIMTA [Suspect]
     Indication: MESOTHELIOMA MALIGNANT
     Dosage: SEE IMAGE
  2. ALIMTA [Suspect]
     Dates: end: 20040801
  3. CISPLATIN [Concomitant]
  4. THERAPEUTIC RADIOPHARMACEUTICALS [Concomitant]

REACTIONS (5)
  - EYE OEDEMA [None]
  - HEPATIC ENZYME ABNORMAL [None]
  - OESOPHAGITIS [None]
  - POST PROCEDURAL COMPLICATION [None]
  - RIGHT VENTRICULAR FAILURE [None]
